FAERS Safety Report 12098684 (Version 3)
Quarter: 2021Q3

REPORT INFORMATION
  Report Type: Other
  Country: US (occurrence: US)
  Receive Date: 20160222
  Receipt Date: 20210813
  Transmission Date: 20211014
  Serious: Yes (Death, Other)
  Sender: FDA-Public Use
  Company Number: US-ROCHE-1712047

PATIENT

DRUGS (2)
  1. RITUXIMAB. [Suspect]
     Active Substance: RITUXIMAB
     Indication: LYMPHOMA
     Dosage: DAYS 1, 8, 15 AND 22
     Route: 042
  2. BRENTUXIMAB VEDOTIN [Suspect]
     Active Substance: BRENTUXIMAB VEDOTIN
     Indication: LYMPHOMA
     Dosage: DAYS 1, 8, AND 15.
     Route: 065

REACTIONS (28)
  - Sepsis [Fatal]
  - Neutropenia [Unknown]
  - Neuropathy peripheral [Unknown]
  - Respiratory disorder [Unknown]
  - Blood bilirubin increased [Unknown]
  - Hyperbilirubinaemia [Unknown]
  - Lipase increased [Unknown]
  - Amylase increased [Unknown]
  - Blood creatinine increased [Unknown]
  - Hypocalcaemia [Unknown]
  - Aspartate aminotransferase increased [Unknown]
  - Diarrhoea [Unknown]
  - Alanine aminotransferase increased [Unknown]
  - Acute kidney injury [Unknown]
  - Pleural effusion [Unknown]
  - Febrile neutropenia [Unknown]
  - Colitis [Fatal]
  - Septic shock [Fatal]
  - Pancreatitis [Unknown]
  - Leukopenia [Unknown]
  - Dehydration [Unknown]
  - Hyponatraemia [Unknown]
  - Lymphopenia [Unknown]
  - Anaemia [Unknown]
  - Infection [Unknown]
  - Hypertension [Unknown]
  - Decreased appetite [Unknown]
  - Hypophosphataemia [Unknown]
